FAERS Safety Report 13472740 (Version 1)
Quarter: 2017Q2

REPORT INFORMATION
  Report Type: Spontaneous
  Country: US (occurrence: US)
  Receive Date: 20170424
  Receipt Date: 20170424
  Transmission Date: 20170830
  Serious: No
  Sender: FDA-Public Use
  Company Number: US-BAUSCH-BL-2016-005444

PATIENT
  Age: 12 Year
  Sex: Male

DRUGS (1)
  1. LOPROX [Suspect]
     Active Substance: CICLOPIROX\CICLOPIROX OLAMINE
     Indication: DERMATITIS
     Dosage: PRESCRIBED THE LOPROX SHAMPOO TO USE ONCE DAILY, BUT THE PATIENT HAD BEEN USING IT EVERY 3 DAYS
     Route: 061

REACTIONS (2)
  - Treatment noncompliance [Unknown]
  - Dry skin [Unknown]
